FAERS Safety Report 12078044 (Version 1)
Quarter: 2016Q1

REPORT INFORMATION
  Report Type: Spontaneous
  Country: CA (occurrence: CA)
  Receive Date: 20160215
  Receipt Date: 20160215
  Transmission Date: 20160526
  Serious: Yes (Other)
  Sender: FDA-Public Use
  Company Number: CA-SUNOVION-2016SUN000348

PATIENT
  Sex: Female

DRUGS (3)
  1. LATUDA [Suspect]
     Active Substance: LURASIDONE HYDROCHLORIDE
     Indication: ANXIETY
     Dosage: 40 MG, QD
     Route: 048
     Dates: start: 201601
  2. LATUDA [Suspect]
     Active Substance: LURASIDONE HYDROCHLORIDE
     Dosage: 80 MG, UNK
     Route: 048
  3. DESIPRAMINE [Concomitant]
     Active Substance: DESIPRAMINE
     Indication: ANXIETY
     Dosage: UNK

REACTIONS (3)
  - Fatigue [Unknown]
  - Off label use [Unknown]
  - Loss of consciousness [Unknown]
